FAERS Safety Report 7418039-0 (Version None)
Quarter: 2011Q1

REPORT INFORMATION
  Report Type: 
  Country: None (occurrence: None)
  Receive Date: 20110312
  Receipt Date: 20110312
  Transmission Date: 20110831
  Serious: Yes (Disabling, Other)
  Sender: FDA-Public Use
  Company Number: None

PATIENT
  Sex: Male
  Weight: 113.3993 kg

DRUGS (1)
  1. ACCUTANE [Suspect]
     Indication: ACNE CYSTIC
     Dates: start: 19900115, end: 19900430

REACTIONS (16)
  - FATIGUE [None]
  - AGGRESSION [None]
  - SKIN IRRITATION [None]
  - ANXIETY [None]
  - DEPRESSION [None]
  - IRRITABLE BOWEL SYNDROME [None]
  - OSTEOARTHRITIS [None]
  - INFECTION [None]
  - DIABETES MELLITUS [None]
  - PERSONALITY CHANGE [None]
  - CONSTIPATION [None]
  - EXOSTOSIS [None]
  - SINUSITIS [None]
  - IMMUNE SYSTEM DISORDER [None]
  - VITAMIN D DECREASED [None]
  - DRY SKIN [None]
